FAERS Safety Report 6033043-5 (Version None)
Quarter: 2009Q1

REPORT INFORMATION
  Report Type: 
  Country: None (occurrence: None)
  Receive Date: 20090107
  Receipt Date: 20081223
  Transmission Date: 20090719
  Serious: Yes (Hospitalization)
  Sender: FDA-Public Use
  Company Number: SPV1-2008-02832

PATIENT
  Age: 64 Year
  Sex: Male

DRUGS (1)
  1. FOSRENOL [Suspect]
     Dosage: 1000 TO 2000MG, WITH MEALS/SNACKS, ORAL
     Route: 048

REACTIONS (1)
  - PNEUMONIA [None]
